FAERS Safety Report 15133960 (Version 1)
Quarter: 2018Q3

REPORT INFORMATION
  Report Type: Spontaneous
  Country: US (occurrence: US)
  Receive Date: 20180712
  Receipt Date: 20180712
  Transmission Date: 20181010
  Serious: Yes (Life-Threatening)
  Sender: FDA-Public Use
  Company Number: US-FRESENIUS KABI-FK201807751

PATIENT
  Age: 82 Year
  Sex: Female

DRUGS (1)
  1. ADENOSINE INJECTION (MANUFACTURER UNKNOWN) [Suspect]
     Active Substance: ADENOSINE
     Indication: FRACTIONAL FLOW RESERVE
     Dosage: BOLUS DOSE 6.6 ML = 40 MICROGRAM
     Route: 022

REACTIONS (3)
  - Ventricular tachycardia [Recovered/Resolved]
  - Product use in unapproved indication [Recovered/Resolved]
  - Product use issue [Recovered/Resolved]
